FAERS Safety Report 9838889 (Version 1)
Quarter: 2014Q1

REPORT INFORMATION
  Report Type: Spontaneous
  Country: US (occurrence: None)
  Receive Date: 20140117
  Receipt Date: 20140117
  Transmission Date: 20141002
  Serious: Yes (Hospitalization)
  Sender: FDA-Public Use
  Company Number: None

PATIENT
  Age: 68 Year
  Sex: Male

DRUGS (10)
  1. SPRYCEL [Suspect]
     Route: 048
     Dates: start: 20130129, end: 20131108
  2. LUMIGAN [Concomitant]
  3. CLOBETASOL [Concomitant]
  4. CARVEDILOL [Concomitant]
  5. PRAVASTATIN [Concomitant]
  6. LANTUS [Concomitant]
  7. LOSARTAN HCTZ [Concomitant]
  8. FUROSEMIDE [Concomitant]
  9. TYLENOL [Concomitant]
  10. BENICAR HCT [Concomitant]

REACTIONS (1)
  - Pulmonary oedema [None]
